FAERS Safety Report 8070087-6 (Version None)
Quarter: 2012Q1

REPORT INFORMATION
  Report Type: 
  Country: None (occurrence: None)
  Receive Date: 20120119
  Receipt Date: 20120113
  Transmission Date: 20120608
  Serious: Yes (Hospitalization, Other)
  Sender: FDA-Public Use
  Company Number: 2012SP002583

PATIENT
  Sex: Female

DRUGS (3)
  1. VICTRELIS [Suspect]
     Indication: HEPATITIS C
     Dates: start: 20111127
  2. RIBAVIRIN [Suspect]
     Indication: HEPATITIS C
     Dates: start: 20111030
  3. PEG-INTRON [Suspect]
     Indication: HEPATITIS C
     Dates: start: 20111030

REACTIONS (9)
  - PLEURITIC PAIN [None]
  - ANAEMIA [None]
  - VOMITING [None]
  - DEHYDRATION [None]
  - PYREXIA [None]
  - TREMOR [None]
  - PLEURISY [None]
  - HYPOTENSION [None]
  - ASTHENIA [None]
